FAERS Safety Report 9356725 (Version 2)
Quarter: 2013Q3

REPORT INFORMATION
  Report Type: Spontaneous
  Country: DE (occurrence: DE)
  Receive Date: 20130619
  Receipt Date: 20130702
  Transmission Date: 20140515
  Serious: Yes (Other)
  Sender: FDA-Public Use
  Company Number: PHHY2013DE061117

PATIENT
  Age: 78 Year
  Sex: Male
  Weight: 84 kg

DRUGS (11)
  1. CO-DIOVAN [Suspect]
     Indication: HYPERTENSION
     Dosage: 1 DF (VALS 160 MG / HYDR 12.5 MG) QD, EVERY DAY
     Dates: start: 2003, end: 2013
  2. ALLOPURINOL [Suspect]
     Dosage: 1 DF (100MG) QD, EVERY DAY
     Dates: start: 2003, end: 2012
  3. IBUPROFEN SANDOZ [Suspect]
     Indication: NEURALGIA
     Dosage: 1 DF (800 MG), QD EVERY DAY
     Dates: start: 2007, end: 2012
  4. UROXATRAL [Suspect]
     Indication: PROSTATIC ADENOMA
     Dosage: 1 DF (10MG), QD EVERY DAY
     Dates: start: 2003, end: 2013
  5. ATENOLOL [Concomitant]
     Indication: HYPERTENSION
     Dosage: 1 DF, EVERY DAY (ATEN 50 MG)
     Dates: start: 2003
  6. METFORMIN [Concomitant]
     Indication: TYPE 2 DIABETES MELLITUS
     Dosage: 1 DF, EVERY DAY (METF 1000 MG)
     Dates: start: 2003
  7. JANUMET [Concomitant]
     Indication: TYPE 2 DIABETES MELLITUS
     Dosage: 1 DF, EVERY DAY (METF 1000MG / SITA 50MG)
     Dates: start: 2003
  8. PALEXIA [Concomitant]
     Indication: NEURALGIA
     Dosage: 1 DF, EVERY DAY (TAPE 50 MG)
     Dates: start: 2009, end: 2012
  9. ARCOXIA [Concomitant]
     Indication: NEURALGIA
     Dosage: 1 DF, EVERY DAY (ETOR 120 MG)
     Dates: start: 2011, end: 2011
  10. DOXICYCLINE//DOXYCYCLINE [Concomitant]
     Indication: INFECTION
     Dosage: 1 DF (100 OR 200MG), EVERY DAY
     Dates: start: 2011, end: 2012
  11. TRAMADOL [Concomitant]
     Indication: PROCEDURAL PAIN
     Dosage: 1 DF, EVERY DAY
     Dates: start: 2009, end: 2011

REACTIONS (3)
  - Anaemia [Unknown]
  - Pancytopenia [Unknown]
  - Renal impairment [Unknown]
